FAERS Safety Report 15212176 (Version 1)
Quarter: 2018Q3

REPORT INFORMATION
  Report Type: Spontaneous
  Country: US (occurrence: US)
  Receive Date: 20180730
  Receipt Date: 20180730
  Transmission Date: 20181010
  Serious: Yes (Other)
  Sender: FDA-Public Use
  Company Number: US-ROCHE-2160624

PATIENT
  Sex: Female

DRUGS (2)
  1. OCREVUS [Suspect]
     Active Substance: OCRELIZUMAB
     Indication: RELAPSING-REMITTING MULTIPLE SCLEROSIS
     Dosage: ONGOING: UNKNOWN
     Route: 065
     Dates: start: 201711
  2. OCREVUS [Suspect]
     Active Substance: OCRELIZUMAB
     Indication: SECONDARY PROGRESSIVE MULTIPLE SCLEROSIS

REACTIONS (1)
  - Multiple sclerosis [Unknown]
